FAERS Safety Report 17656613 (Version 1)
Quarter: 2020Q2

REPORT INFORMATION
  Report Type: Spontaneous
  Country: US (occurrence: US)
  Receive Date: 20200410
  Receipt Date: 20200410
  Transmission Date: 20200713
  Serious: No
  Sender: FDA-Public Use
  Company Number: NVSC2020US097195

PATIENT
  Sex: Female

DRUGS (1)
  1. GENTAMICIN. [Suspect]
     Active Substance: GENTAMICIN
     Indication: PRODUCT USE IN UNAPPROVED INDICATION
     Dosage: 450 MG
     Route: 042

REACTIONS (2)
  - Maternal exposure during pregnancy [Unknown]
  - Wrong product administered [Unknown]
